FAERS Safety Report 15346215 (Version 1)
Quarter: 2018Q3

REPORT INFORMATION
  Report Type: Spontaneous
  Country: IE (occurrence: IE)
  Receive Date: 20180904
  Receipt Date: 20180904
  Transmission Date: 20181010
  Serious: Yes (Hospitalization)
  Sender: FDA-Public Use
  Company Number: IE-AXELLIA-001931

PATIENT
  Age: 77 Year
  Sex: Female

DRUGS (7)
  1. CEFTRIAXONE. [Concomitant]
     Active Substance: CEFTRIAXONE
  2. VANCOMYCIN [Suspect]
     Active Substance: VANCOMYCIN
     Indication: INFECTION
     Dosage: 7 DOSES?STRENGTH: 1000 MG
     Route: 042
     Dates: start: 20180728, end: 20180803
  3. INSULIN [Concomitant]
     Active Substance: INSULIN NOS
  4. AZATHIOPRINE. [Concomitant]
     Active Substance: AZATHIOPRINE
  5. APIXABAN [Concomitant]
     Active Substance: APIXABAN
     Dosage: STRENGTH: 2.5 MG
  6. ESOMEPRAZOLE/ESOMEPRAZOLE MAGNESIUM/ESOMEPRAZOLE SODIUM [Concomitant]
  7. BISOPROLOL [Concomitant]
     Active Substance: BISOPROLOL

REACTIONS (3)
  - Respiratory distress [Recovered/Resolved]
  - Red man syndrome [Recovered/Resolved]
  - Anaphylactic reaction [Recovered/Resolved]
